FAERS Safety Report 9887826 (Version 1)
Quarter: 2014Q1

REPORT INFORMATION
  Report Type: Spontaneous
  Country: BR (occurrence: BR)
  Receive Date: 20140211
  Receipt Date: 20140211
  Transmission Date: 20141002
  Serious: Yes (Other)
  Sender: FDA-Public Use
  Company Number: BR-SA-2014SA013820

PATIENT
  Age: 35 Year
  Sex: Female
  Weight: 66.5 kg

DRUGS (7)
  1. LANTUS [Suspect]
     Indication: TYPE 1 DIABETES MELLITUS
     Route: 058
     Dates: start: 2011
  2. APIDRA [Suspect]
     Indication: TYPE 1 DIABETES MELLITUS
     Dosage: DOSE-IUS OF ACCORDING TO THE CARBOHYDRATE COUNT
     Route: 058
     Dates: start: 201207
  3. OXCARBAZEPINE [Concomitant]
     Indication: ANTIDEPRESSANT THERAPY
     Dates: start: 2013
  4. FOLIC ACID [Concomitant]
     Indication: INFERTILITY TESTS
     Dates: start: 1999
  5. OMEPRAZOLE [Concomitant]
     Indication: GASTROOESOPHAGEAL REFLUX DISEASE
     Dates: start: 2006
  6. CLIKSTAR [Concomitant]
     Indication: DEVICE THERAPY
  7. CLIKSTAR [Concomitant]
     Indication: DEVICE THERAPY
     Dates: start: 2012

REACTIONS (6)
  - Device related infection [Recovered/Resolved]
  - Catheter site pain [Recovered/Resolved]
  - Purulence [Recovered/Resolved]
  - Hypoglycaemia [Not Recovered/Not Resolved]
  - Yawning [Not Recovered/Not Resolved]
  - Injection site pain [Not Recovered/Not Resolved]
